FAERS Safety Report 9052444 (Version 1)
Quarter: 2013Q1

REPORT INFORMATION
  Report Type: Report from Study
  Country: IN (occurrence: IN)
  Receive Date: 20130207
  Receipt Date: 20130207
  Transmission Date: 20140127
  Serious: Yes (Death, Life-Threatening)
  Sender: FDA-Public Use
  Company Number: IN-AMGEN-INDCT2013008797

PATIENT
  Age: 78 Year
  Sex: Female
  Weight: 49 kg

DRUGS (12)
  1. DARBEPOETIN ALFA [Suspect]
     Indication: ANAEMIA OF MALIGNANT DISEASE
     Dosage: UNK
     Dates: start: 20130119, end: 20130119
  2. PEMETREXED [Concomitant]
     Indication: NON-SMALL CELL LUNG CANCER
     Dosage: 700 MG, Q3WK
     Route: 042
     Dates: start: 20130117, end: 20130117
  3. CARBOPLATIN [Concomitant]
     Indication: NON-SMALL CELL LUNG CANCER
     Dosage: 378 MG, Q3WK
     Route: 042
     Dates: start: 20130118, end: 20130118
  4. GRANISETRON [Concomitant]
     Indication: VOMITING
     Dosage: 3 MG, UNK
     Route: 042
     Dates: start: 20130117, end: 20130118
  5. DEXAMETHASONE [Concomitant]
     Indication: HYPERSENSITIVITY
     Dosage: 8 MG, UNK
     Route: 042
     Dates: start: 20130117, end: 20130118
  6. RANITIDINE HCL [Concomitant]
     Indication: DYSPEPSIA
     Dosage: 150 MG, UNK
     Route: 048
     Dates: start: 20130117, end: 20130128
  7. AVIL [Concomitant]
     Indication: HYPERSENSITIVITY
     Dosage: UNK
     Dates: start: 20130117, end: 20130117
  8. ONDANSETRON [Concomitant]
     Indication: VOMITING
     Dosage: 8 MG, UNK
     Route: 048
     Dates: start: 20130119, end: 20130125
  9. DOMPERIDONE [Concomitant]
     Indication: VOMITING
     Dosage: 10 MG, UNK
     Route: 048
     Dates: start: 20130118, end: 20130125
  10. LACTULOSE [Concomitant]
     Indication: CONSTIPATION
     Dosage: UNK
     Dates: start: 20130117, end: 20130128
  11. AMOXICILLIN W/CLAVULANATE POTASSIUM [Concomitant]
     Indication: INFECTION
     Dosage: 625 MG, UNK
     Dates: start: 20130119, end: 20130123
  12. PREDNISOLONE [Concomitant]
     Indication: HYPERSENSITIVITY
     Dosage: 5 MG, UNK
     Route: 048
     Dates: start: 20130120, end: 20130128

REACTIONS (1)
  - Sudden death [Fatal]
